FAERS Safety Report 8933019 (Version 1)
Quarter: 2012Q4

REPORT INFORMATION
  Report Type: Spontaneous
  Country: US (occurrence: None)
  Receive Date: 20121127
  Receipt Date: 20121127
  Transmission Date: 20130627
  Serious: Yes (Life-Threatening)
  Sender: FDA-Public Use
  Company Number: None

PATIENT
  Age: 77 Year
  Sex: Male
  Weight: 91.9 kg

DRUGS (2)
  1. METOPROLOL [Suspect]
     Indication: ATRIAL FIBRILLATION
     Route: 048
     Dates: start: 20121110, end: 20121110
  2. METOPROLOL [Suspect]
     Indication: MITRAL VALVE INCOMPETENCE
     Route: 048
     Dates: start: 20121110, end: 20121110

REACTIONS (2)
  - Tachypnoea [None]
  - Bronchospasm [None]
